FAERS Safety Report 21689713 (Version 1)
Quarter: 2022Q4

REPORT INFORMATION
  Report Type: Spontaneous
  Country: US (occurrence: None)
  Receive Date: 20221205
  Receipt Date: 20221205
  Transmission Date: 20230112
  Serious: No
  Sender: FDA-Public Use
  Company Number: None

PATIENT
  Sex: Female
  Weight: 69.85 kg

DRUGS (10)
  1. SPRYCEL [Suspect]
     Active Substance: DASATINIB
     Indication: Chronic myeloid leukaemia
     Dosage: 50MG DAILY ORAL
     Route: 048
     Dates: start: 202210
  2. ALLOPURINOL [Concomitant]
     Active Substance: ALLOPURINOL
  3. FERROUS SULFATE [Concomitant]
  4. HYDROXYUREA [Concomitant]
  5. FERROUS SULFATE ANHYDROUS [Concomitant]
     Active Substance: FERROUS SULFATE ANHYDROUS
  6. LOSARTAN [Concomitant]
     Active Substance: LOSARTAN
  7. VITAMINS [Concomitant]
     Active Substance: VITAMINS
  8. PANTOPRAZOLE [Concomitant]
     Active Substance: PANTOPRAZOLE
  9. Robitussin 12 Hour Cough [Concomitant]
  10. STOOL SOFTENER (DOCUSATE) [Concomitant]
     Active Substance: DOCUSATE

REACTIONS (2)
  - Platelet count decreased [None]
  - Therapy interrupted [None]
